FAERS Safety Report 23576831 (Version 1)
Quarter: 2024Q1

REPORT INFORMATION
  Report Type: Spontaneous
  Country: US (occurrence: US)
  Receive Date: 20240228
  Receipt Date: 20240228
  Transmission Date: 20240410
  Serious: No
  Sender: FDA-Public Use
  Company Number: US-Millicent Holdings Ltd.-MILL20240081

PATIENT
  Age: 64 Year
  Sex: Female

DRUGS (5)
  1. INTRAROSA [Suspect]
     Active Substance: PRASTERONE
     Indication: Menopausal symptoms
     Dosage: 6.5 MG, NIGHTLY
     Route: 067
     Dates: start: 202312
  2. INTRAROSA [Suspect]
     Active Substance: PRASTERONE
     Indication: Vulvovaginal dryness
     Dosage: 6.5 MG, NIGHTLY
     Route: 067
     Dates: start: 202312
  3. INTRAROSA [Suspect]
     Active Substance: PRASTERONE
     Indication: Vulvovaginal pruritus
  4. INTRAROSA [Suspect]
     Active Substance: PRASTERONE
     Indication: Atrophic vulvovaginitis
  5. compounded estriol cream [Concomitant]
     Indication: Product used for unknown indication
     Dosage: UNKNOWN
     Route: 065

REACTIONS (7)
  - Drug ineffective [Not Recovered/Not Resolved]
  - Underdose [Unknown]
  - Product physical issue [Unknown]
  - Poor quality product administered [Unknown]
  - Product dose omission issue [Unknown]
  - Wrong technique in product usage process [Not Recovered/Not Resolved]
  - Off label use [Unknown]

NARRATIVE: CASE EVENT DATE: 20231201
